FAERS Safety Report 7468708-1 (Version None)
Quarter: 2011Q2

REPORT INFORMATION
  Report Type: 
  Country: None (occurrence: None)
  Receive Date: 20110510
  Receipt Date: 20110429
  Transmission Date: 20111010
  Serious: No
  Sender: FDA-Public Use
  Company Number: US-BIOGENIDEC-2011BI005320

PATIENT
  Sex: Female

DRUGS (1)
  1. TYSABRI [Suspect]
     Indication: MULTIPLE SCLEROSIS
     Route: 042
     Dates: start: 20091007

REACTIONS (9)
  - CARDIOMEGALY [None]
  - MOBILITY DECREASED [None]
  - JOINT SWELLING [None]
  - BRUXISM [None]
  - CHEST PAIN [None]
  - JOINT EFFUSION [None]
  - DEPRESSED MOOD [None]
  - HYPERTENSION [None]
  - ARTHRALGIA [None]
